FAERS Safety Report 18073728 (Version 1)
Quarter: 2020Q3

REPORT INFORMATION
  Report Type: Spontaneous
  Country: DE (occurrence: DE)
  Receive Date: 20200727
  Receipt Date: 20200727
  Transmission Date: 20201103
  Serious: Yes (Hospitalization, Other)
  Sender: FDA-Public Use
  Company Number: DE-MYLANLABS-2020M1066410

PATIENT
  Age: 68 Year
  Sex: Female
  Weight: 58 kg

DRUGS (11)
  1. XIPAMID 1A PHARMA [Concomitant]
     Dosage: 40 MILLIGRAM, QD
  2. CALCIUM PLUS VITAMIN D3 [Concomitant]
     Dosage: 400 MG 1X/DAY
  3. TOLPERISON HCL STADA [Concomitant]
     Dosage: 50 MG, 2X/DAY
  4. CELEBREX [Suspect]
     Active Substance: CELECOXIB
     Indication: MUSCULOSKELETAL STIFFNESS
     Dosage: 200 MILLIGRAM, QD
     Dates: start: 2005
  5. SILICA [Concomitant]
     Active Substance: SILICON DIOXIDE
     Dosage: UNK 2X/DAY, QD
  6. MAGNESIUM [Concomitant]
     Active Substance: MAGNESIUM
     Dosage: UNK 375 ML, 1X/DAY, QD
  7. BISOPROLOL RATIOPHARM [Concomitant]
     Active Substance: BISOPROLOL
     Dosage: 2.5 MILLIGRAM, QD
  8. TRAMADOL LIBRAPHARM [Concomitant]
     Dosage: 200 MG, 2X/DAY
  9. PREGABALIN. [Suspect]
     Active Substance: PREGABALIN
     Indication: HERPES ZOSTER
     Dosage: UNK
     Dates: end: 201909
  10. VITAMIN C + ZINK [Concomitant]
     Dosage: UNK UNK, QD
  11. NOVOTHYRAL [Concomitant]
     Active Substance: LEVOTHYROXINE SODIUM\LIOTHYRONINE SODIUM
     Dosage: 74 MILLIGRAM, QD

REACTIONS (5)
  - Toxicity to various agents [Not Recovered/Not Resolved]
  - Respiratory failure [Recovered/Resolved]
  - Bronchitis [Recovered/Resolved]
  - Interstitial lung disease [Recovered/Resolved]
  - Oedema peripheral [Recovered/Resolved]

NARRATIVE: CASE EVENT DATE: 201903
